FAERS Safety Report 5677332-2 (Version None)
Quarter: 2008Q1

REPORT INFORMATION
  Report Type: 
  Country: None (occurrence: None)
  Receive Date: 20080320
  Receipt Date: 20080320
  Transmission Date: 20080703
  Serious: Yes (Hospitalization)
  Sender: FDA-Public Use
  Company Number: None

PATIENT
  Sex: Female
  Weight: 58.9676 kg

DRUGS (2)
  1. LAMICTAL [Suspect]
     Indication: ANXIETY
     Dosage: 25 MG  QD  PO
     Route: 048
     Dates: start: 20080208, end: 20080312
  2. LAMICTAL [Suspect]
     Indication: DEPRESSION
     Dosage: 25 MG  QD  PO
     Route: 048
     Dates: start: 20080208, end: 20080312

REACTIONS (1)
  - BRONCHOSPASM [None]
